FAERS Safety Report 7496426-2 (Version None)
Quarter: 2011Q2

REPORT INFORMATION
  Report Type: 
  Country: None (occurrence: None)
  Receive Date: 20110523
  Receipt Date: 20110511
  Transmission Date: 20111010
  Serious: Yes (Other)
  Sender: FDA-Public Use
  Company Number: PHHY2011US38572

PATIENT
  Sex: Female
  Weight: 83.9 kg

DRUGS (1)
  1. GILENYA [Suspect]
     Indication: MULTIPLE SCLEROSIS RELAPSE
     Dosage: 0.5 MG, QD
     Route: 048
     Dates: start: 20110505, end: 20110505

REACTIONS (9)
  - EYE IRRITATION [None]
  - PRURITUS [None]
  - NAUSEA [None]
  - ANAPHYLACTOID REACTION [None]
  - SWELLING [None]
  - URTICARIA [None]
  - ANGIOEDEMA [None]
  - HEADACHE [None]
  - ABDOMINAL PAIN UPPER [None]
